FAERS Safety Report 4915931-3 (Version None)
Quarter: 2006Q1

REPORT INFORMATION
  Report Type: 
  Country: None (occurrence: None)
  Receive Date: 20060214
  Receipt Date: 20060127
  Transmission Date: 20060701
  Serious: Yes (Other)
  Sender: FDA-Public Use
  Company Number: US200601004903

PATIENT
  Age: 62 Year
  Sex: Male

DRUGS (5)
  1. HUMULIN N [Suspect]
     Indication: DIABETES MELLITUS
     Dosage: 8U DAILY (1/D) - SEE IMAGE
     Dates: start: 20030101, end: 20050101
  2. HUMULIN N [Suspect]
     Indication: DIABETES MELLITUS
     Dosage: 8U DAILY (1/D) - SEE IMAGE
     Dates: start: 20051101
  3. HUMALOG [Suspect]
     Indication: DIABETES MELLITUS
     Dosage: AS NEEDED
     Dates: start: 20051101
  4. TOPROL-XL [Concomitant]
  5. NIFEDIPINE [Concomitant]

REACTIONS (4)
  - BLOOD GLUCOSE INCREASED [None]
  - DIALYSIS [None]
  - PHARMACEUTICAL PRODUCT COMPLAINT [None]
  - RENAL FAILURE [None]
